FAERS Safety Report 6752203-9 (Version None)
Quarter: 2010Q2

REPORT INFORMATION
  Report Type: 
  Country: None (occurrence: None)
  Receive Date: 20100602
  Receipt Date: 20100601
  Transmission Date: 20101027
  Serious: Yes (Death, Hospitalization, Disabling)
  Sender: FDA-Public Use
  Company Number: BR-B.I. PHARMACEUTICALS,INC./RIDGEFIELD-2010-BR-00512BR

PATIENT
  Sex: Female

DRUGS (8)
  1. SPIRIVA RESPIMAT [Suspect]
     Indication: EMPHYSEMA
     Dosage: 5 MCG
     Route: 055
     Dates: end: 20100513
  2. SYMBICORT [Concomitant]
     Indication: EMPHYSEMA
     Dosage: NR
  3. LABIRIN [Concomitant]
     Indication: LABYRINTHITIS
     Dosage: NR
  4. OMEPRAZOLE [Concomitant]
     Indication: GASTRITIS
     Dosage: NR
  5. ENALAPRIL [Concomitant]
     Indication: BLOOD PRESSURE INCREASED
     Dosage: NR
  6. SPIRONOLACTONE [Concomitant]
     Indication: BLOOD PRESSURE INCREASED
     Dosage: NR
  7. SIMVASTATIN [Concomitant]
     Indication: BLOOD CHOLESTEROL INCREASED
     Dosage: NR
  8. VALERIANA [Concomitant]
     Dosage: NR

REACTIONS (2)
  - COMA [None]
  - SEPSIS [None]
